FAERS Safety Report 9252333 (Version 2)
Quarter: 2014Q1

REPORT INFORMATION
  Report Type: Spontaneous
  Country: US (occurrence: None)
  Receive Date: 20130305
  Receipt Date: 20140306
  Transmission Date: 20141002
  Serious: Yes (Hospitalization, Other)
  Sender: FDA-Public Use
  Company Number: 163-21880-12083124

PATIENT
  Age: 77 Year
  Sex: Male

DRUGS (11)
  1. REVLIMID [Suspect]
     Indication: PLASMA CELL MYELOMA
     Route: 048
     Dates: start: 20100823
  2. ZOMETA (ZOLEDRONIC ACID) [Suspect]
     Indication: PRODUCT USED FOR UNKNOWN INDICATION
  3. PRILOSEC (OMEPRAZOLE) [Concomitant]
  4. COUMADIN (WARFARIN SODIUM) [Concomitant]
  5. FLONASE (FLUTICASONE PROPIONATE) [Concomitant]
  6. ZOCOR I(SIMVASTATIN) [Concomitant]
  7. AMPICILLIN (AMPICILLIN) [Concomitant]
  8. ADVAIR (SERETIDE MITE) [Concomitant]
  9. VITAMIN D (ERGOCALCIFEROL) [Concomitant]
  10. STEROIDS (OTHER THERAPEUTIC PRODUCTS) [Concomitant]
  11. BRONCHODILATORS (OTHER THERAPEUTIC PRODUCTS) [Concomitant]

REACTIONS (3)
  - Pneumonia [None]
  - Renal failure [None]
  - Neutrophil count decreased [None]
